FAERS Safety Report 24773186 (Version 6)
Quarter: 2025Q2

REPORT INFORMATION
  Report Type: Spontaneous
  Country: US (occurrence: US)
  Receive Date: 20241225
  Receipt Date: 20250529
  Transmission Date: 20250717
  Serious: No
  Sender: AMGEN
  Company Number: US-AMGEN-USASP2024248950

PATIENT
  Sex: Female

DRUGS (2)
  1. TEPEZZA [Suspect]
     Active Substance: TEPROTUMUMAB-TRBW
     Indication: Endocrine ophthalmopathy
     Route: 040
  2. TEPEZZA [Suspect]
     Active Substance: TEPROTUMUMAB-TRBW
     Route: 040

REACTIONS (11)
  - Unevaluable event [Unknown]
  - Malaise [Unknown]
  - Therapy non-responder [Unknown]
  - Feeling abnormal [Unknown]
  - Diarrhoea [Unknown]
  - Muscle spasms [Unknown]
  - Alopecia [Unknown]
  - Nail disorder [Unknown]
  - Dry skin [Unknown]
  - Eyelid disorder [Unknown]
  - Toxicity to various agents [Unknown]
